FAERS Safety Report 4637236-0 (Version None)
Quarter: 2005Q2

REPORT INFORMATION
  Report Type: 
  Country: None (occurrence: None)
  Receive Date: 20050325
  Receipt Date: 20041202
  Transmission Date: 20051028
  Serious: No
  Sender: FDA-Public Use
  Company Number: USA041285236

PATIENT
  Age: 68 Year
  Sex: Female

DRUGS (1)
  1. FORTEO [Suspect]
     Indication: OSTEOPOROSIS

REACTIONS (5)
  - ARTHRALGIA [None]
  - CONTUSION [None]
  - INJECTION SITE SWELLING [None]
  - NAUSEA [None]
  - PAIN IN EXTREMITY [None]
